FAERS Safety Report 5835483-3 (Version None)
Quarter: 2008Q3

REPORT INFORMATION
  Report Type: 
  Country: None (occurrence: None)
  Receive Date: 20080806
  Receipt Date: 20080730
  Transmission Date: 20090109
  Serious: Yes (Other)
  Sender: FDA-Public Use
  Company Number: US-JNJCH-2008020000

PATIENT
  Sex: Female

DRUGS (2)
  1. SUDAFED 12 HOUR [Suspect]
     Indication: SINUS HEADACHE
     Dosage: TEXT:2 1X PER DAY
     Route: 048
  2. SUDAFED 12 HOUR [Suspect]
     Indication: SINUS CONGESTION

REACTIONS (1)
  - METAMORPHOPSIA [None]
